FAERS Safety Report 20633529 (Version 6)
Quarter: 2023Q2

REPORT INFORMATION
  Report Type: Report from Study
  Country: UA (occurrence: UA)
  Receive Date: 20220324
  Receipt Date: 20230602
  Transmission Date: 20230721
  Serious: Yes (Hospitalization)
  Sender: FDA-Public Use
  Company Number: UA-JNJFOC-20220343249

PATIENT
  Age: 73 Year
  Sex: Male
  Weight: 75.2 kg

DRUGS (11)
  1. DARATUMUMAB [Suspect]
     Active Substance: DARATUMUMAB
     Indication: Plasma cell myeloma
     Dosage: LAST DOSE PRIOR TO EVENT 23-FEB-2022; MEDICATION KIT 275970-01-04
     Route: 042
     Dates: start: 20151201
  2. BORTEZOMIB [Concomitant]
     Active Substance: BORTEZOMIB
     Indication: Plasma cell myeloma
     Dosage: TWICE WEEKLY 1 CYCLE, ONCE WEEKLY CYCLE 2-9; MEDICATION KIT V16018-02
     Route: 058
     Dates: start: 20151201, end: 20161129
  3. MELPHALAN [Concomitant]
     Active Substance: MELPHALAN
     Indication: Plasma cell myeloma
     Dosage: DAYS 1-4 OF CYCLES 1-9; MEDICATION KIT M14118
     Route: 048
     Dates: start: 20151201, end: 20161115
  4. PREDNISONE [Concomitant]
     Active Substance: PREDNISONE
     Indication: Plasma cell myeloma
     Dosage: DAYS 1-4 OF CYCLES 1-9; MEDICATION KIT P20172
     Route: 048
     Dates: start: 20151202, end: 20161107
  5. LIPRAZID [Concomitant]
     Indication: Hypertension
     Route: 048
     Dates: start: 20131212
  6. METOPROLOL TARTRATE [Concomitant]
     Active Substance: METOPROLOL TARTRATE
     Indication: Hypertension
     Route: 048
     Dates: start: 20131212
  7. LISINOPRIL [Concomitant]
     Active Substance: LISINOPRIL
     Indication: Hypertension
     Route: 048
     Dates: start: 20131212
  8. VALAVIR [VALACICLOVIR HYDROCHLORIDE] [Concomitant]
     Indication: Antiviral prophylaxis
     Route: 048
     Dates: start: 20151201
  9. ASPARCAM [Concomitant]
     Indication: Mineral supplementation
     Route: 048
     Dates: start: 20151201
  10. FAMOTIDINUM [Concomitant]
     Indication: Prophylaxis
     Route: 048
     Dates: start: 20151201
  11. ALLOPURINOL [Concomitant]
     Active Substance: ALLOPURINOL
     Indication: Prophylaxis
     Route: 048
     Dates: start: 20151201

REACTIONS (2)
  - Neutropenia [Recovered/Resolved]
  - Thrombocytopenia [Recovered/Resolved with Sequelae]

NARRATIVE: CASE EVENT DATE: 20220315
